FAERS Safety Report 5245245-6 (Version None)
Quarter: 2007Q1

REPORT INFORMATION
  Report Type: 
  Country: None (occurrence: None)
  Receive Date: 20070223
  Receipt Date: 20070214
  Transmission Date: 20070707
  Serious: Yes (Other)
  Sender: FDA-Public Use
  Company Number: GB-GILEAD-2007-0011320

PATIENT
  Age: 42 Year
  Sex: Male

DRUGS (2)
  1. TRUVADA [Suspect]
     Dates: start: 20061101
  2. SUSTIVA [Suspect]
     Route: 048
     Dates: start: 20061101, end: 20070101

REACTIONS (2)
  - AGGRESSION [None]
  - SUICIDAL IDEATION [None]
